FAERS Safety Report 13455728 (Version 1)
Quarter: 2017Q2

REPORT INFORMATION
  Report Type: Report from Study
  Country: US (occurrence: US)
  Receive Date: 20170418
  Receipt Date: 20170418
  Transmission Date: 20170830
  Serious: Yes (Death, Hospitalization)
  Sender: FDA-Public Use
  Company Number: US-ACTELION-A-NJ2016-137432

PATIENT
  Age: 69 Year
  Sex: Male
  Weight: 77.98 kg

DRUGS (3)
  1. VELETRI [Suspect]
     Active Substance: EPOPROSTENOL
     Indication: PULMONARY HYPERTENSION
     Dosage: 30 NG/KG, PER MIN
     Route: 042
     Dates: start: 20140113, end: 20170411
  2. LETAIRIS [Concomitant]
     Active Substance: AMBRISENTAN
     Dosage: 10 MG, QD
     Dates: end: 20170405
  3. REMODULIN [Concomitant]
     Active Substance: TREPROSTINIL

REACTIONS (12)
  - Death [Fatal]
  - Sepsis [Unknown]
  - Multiple allergies [Unknown]
  - Viral upper respiratory tract infection [Unknown]
  - Peripheral swelling [Unknown]
  - Hypotension [Unknown]
  - Dyspnoea exertional [Unknown]
  - Dyspnoea [Unknown]
  - Respiratory failure [Unknown]
  - Dehydration [Unknown]
  - Fluid retention [Unknown]
  - Cardiac failure [Unknown]

NARRATIVE: CASE EVENT DATE: 20170411
